FAERS Safety Report 15404983 (Version 2)
Quarter: 2018Q4

REPORT INFORMATION
  Report Type: Spontaneous
  Country: IT (occurrence: IT)
  Receive Date: 20180920
  Receipt Date: 20181017
  Transmission Date: 20190204
  Serious: Yes (Other)
  Sender: FDA-Public Use
  Company Number: IT-BEH-2018094887

PATIENT
  Sex: Male
  Weight: 1.08 kg

DRUGS (1)
  1. ANTI-D IMMUNOGLOBULIN (NC) [Suspect]
     Active Substance: HUMAN RHO(D) IMMUNE GLOBULIN
     Indication: PROPHYLAXIS AGAINST RH ISOIMMUNISATION
     Dosage: 300 ?G, TOT
     Route: 065

REACTIONS (7)
  - Isoimmune haemolytic disease [Unknown]
  - Apgar score low [Unknown]
  - Pericardial effusion [Unknown]
  - Foetal anaemia [Unknown]
  - Tachycardia foetal [Unknown]
  - Cardiomegaly [Unknown]
  - Neonatal respiratory distress syndrome [Unknown]
